FAERS Safety Report 11390768 (Version 1)
Quarter: 2015Q3

REPORT INFORMATION
  Report Type: Spontaneous
  Country: None (occurrence: None)
  Receive Date: 20150814
  Receipt Date: 20150814
  Transmission Date: 20151125
  Serious: No
  Sender: FDA-Public Use
  Company Number: None

PATIENT
  Age: 62 Year
  Sex: Male
  Weight: 102.97 kg

DRUGS (14)
  1. IBUPROFEN. [Concomitant]
     Active Substance: IBUPROFEN
  2. OXYCODONE [Concomitant]
     Active Substance: OXYCODONE
  3. DEXAMETHASONE. [Concomitant]
     Active Substance: DEXAMETHASONE
  4. LORAZEPAM. [Concomitant]
     Active Substance: LORAZEPAM
  5. PACLITAXEL 300MG HOSPIRA [Suspect]
     Active Substance: PACLITAXEL
     Indication: RECURRENT CANCER
     Route: 042
  6. CARBOPLATIN 600MG HOSPIRA [Suspect]
     Active Substance: CARBOPLATIN
     Indication: RECURRENT CANCER
     Route: 042
  7. FENTANYL. [Concomitant]
     Active Substance: FENTANYL
  8. RANITIDINE [Concomitant]
     Active Substance: RANITIDINE\RANITIDINE HYDROCHLORIDE
  9. PACLITAXEL 300MG HOSPIRA [Suspect]
     Active Substance: PACLITAXEL
     Indication: SQUAMOUS CELL CARCINOMA
     Route: 042
  10. ALBUTEROL INHALER [Concomitant]
     Active Substance: ALBUTEROL
  11. DOCUSATE [Concomitant]
     Active Substance: DOCUSATE
  12. ONDANSETRON [Concomitant]
     Active Substance: ONDANSETRON
  13. CARBOPLATIN 600MG HOSPIRA [Suspect]
     Active Substance: CARBOPLATIN
     Indication: SQUAMOUS CELL CARCINOMA
     Route: 042
  14. DIPHENHYDRAMINE. [Concomitant]
     Active Substance: DIPHENHYDRAMINE

REACTIONS (1)
  - Pruritus [None]

NARRATIVE: CASE EVENT DATE: 20150811
